FAERS Safety Report 14299770 (Version 1)
Quarter: 2017Q4

REPORT INFORMATION
  Report Type: Spontaneous
  Country: FR (occurrence: FR)
  Receive Date: 20171219
  Receipt Date: 20171219
  Transmission Date: 20180321
  Serious: Yes (Other)
  Sender: FDA-Public Use
  Company Number: FR-MERCK KGAA-2037358

PATIENT
  Sex: Female

DRUGS (1)
  1. NOVOTHYROX [Suspect]
     Active Substance: LEVOTHYROXINE SODIUM
     Indication: PRODUCT USED FOR UNKNOWN INDICATION

REACTIONS (9)
  - Alopecia [None]
  - Sense of oppression [None]
  - Palpitations [None]
  - Irritability [None]
  - Muscular weakness [None]
  - Fatigue [None]
  - Blood pressure decreased [None]
  - Depression [None]
  - Pain in extremity [None]
